FAERS Safety Report 25239029 (Version 2)
Quarter: 2025Q2

REPORT INFORMATION
  Report Type: Spontaneous
  Country: DE (occurrence: DE)
  Receive Date: 20250425
  Receipt Date: 20250429
  Transmission Date: 20250716
  Serious: Yes (Hospitalization, Other)
  Sender: ABBVIE
  Company Number: DE-IPSEN Group, Research and Development-2025-08835

PATIENT
  Age: 43 Year
  Sex: Female

DRUGS (1)
  1. BOTULINUM TOXIN TYPE A [Suspect]
     Active Substance: BOTULINUM TOXIN TYPE A
     Indication: Decreased appetite
     Route: 050

REACTIONS (2)
  - Botulism [Recovering/Resolving]
  - Off label use [Unknown]
